FAERS Safety Report 13762903 (Version 1)
Quarter: 2017Q3

REPORT INFORMATION
  Report Type: Spontaneous
  Country: JP (occurrence: JP)
  Receive Date: 20170718
  Receipt Date: 20170718
  Transmission Date: 20171127
  Serious: Yes (Other)
  Sender: FDA-Public Use
  Company Number: JP-ASTELLAS-2017JP013582

PATIENT

DRUGS (1)
  1. PROGRAF [Suspect]
     Active Substance: TACROLIMUS\TACROLIMUS ANHYDROUS
     Indication: MYELODYSPLASTIC SYNDROME
     Dosage: 0.5 MG, TWICE DAILY
     Route: 048

REACTIONS (2)
  - Haemolysis [Unknown]
  - Off label use [Unknown]
